FAERS Safety Report 19642216 (Version 1)
Quarter: 2021Q3

REPORT INFORMATION
  Report Type: Spontaneous
  Country: US (occurrence: US)
  Receive Date: 20210730
  Receipt Date: 20210730
  Transmission Date: 20211014
  Serious: No
  Sender: FDA-Public Use
  Company Number: US-SA-2021SA248469

PATIENT
  Sex: Male

DRUGS (2)
  1. DUPIXENT [Suspect]
     Active Substance: DUPILUMAB
     Dosage: 300 MG, QOD
     Route: 058
  2. OTEZLA [Concomitant]
     Active Substance: APREMILAST

REACTIONS (2)
  - Product use issue [Unknown]
  - Arthritis [Unknown]
